FAERS Safety Report 10882169 (Version 1)
Quarter: 2015Q1

REPORT INFORMATION
  Report Type: Spontaneous
  Country: US (occurrence: None)
  Receive Date: 20150225
  Receipt Date: 20150225
  Transmission Date: 20150721
  Serious: Yes (Hospitalization, Disabling)
  Sender: FDA-Public Use
  Company Number: None

PATIENT
  Age: 68 Year
  Sex: Male
  Weight: 90.72 kg

DRUGS (4)
  1. WALKER SEAT [Concomitant]
     Active Substance: DEVICE
  2. PROBIOTICS [Concomitant]
     Active Substance: PROBIOTICS NOS
  3. MILK THISTLE [Concomitant]
     Active Substance: MILK THISTLE
  4. XIFAXAN [Suspect]
     Active Substance: RIFAXIMIN
     Indication: HEPATIC ENCEPHALOPATHY
     Dosage: 1 PILL
     Route: 048
     Dates: start: 20150214, end: 20150217

REACTIONS (10)
  - Paranoia [None]
  - Localised infection [None]
  - Personality change [None]
  - Cerebrovascular accident [None]
  - Palpitations [None]
  - Anxiety [None]
  - Speech disorder [None]
  - Confusional state [None]
  - Motor dysfunction [None]
  - Dyspnoea [None]

NARRATIVE: CASE EVENT DATE: 20150216
